FAERS Safety Report 4723890-1 (Version None)
Quarter: 2005Q3

REPORT INFORMATION
  Report Type: 
  Country: None (occurrence: None)
  Receive Date: 20050722
  Receipt Date: 20050711
  Transmission Date: 20060218
  Serious: Yes (Disabling, Other)
  Sender: FDA-Public Use
  Company Number: 2005075712

PATIENT
  Sex: Female

DRUGS (5)
  1. CELEBREX [Suspect]
     Indication: PAIN MANAGEMENT
  2. BEXTRA [Suspect]
     Indication: BONE PAIN
     Dosage: 200 MG (200 MG, 1 IN 1 D), ORAL
     Route: 048
     Dates: start: 20040101
  3. MORPHINE [Concomitant]
  4. VICODIN [Concomitant]
  5. VICODIN [Concomitant]

REACTIONS (7)
  - DIFFICULTY IN WALKING [None]
  - DRUG INEFFECTIVE [None]
  - FATIGUE [None]
  - INFLAMMATION [None]
  - OEDEMA PERIPHERAL [None]
  - PAIN [None]
  - PAIN IN EXTREMITY [None]
